FAERS Safety Report 22959480 (Version 2)
Quarter: 2023Q4

REPORT INFORMATION
  Report Type: Spontaneous
  Country: DE (occurrence: DE)
  Receive Date: 20230920
  Receipt Date: 20231010
  Transmission Date: 20240109
  Serious: Yes (Other)
  Sender: FDA-Public Use
  Company Number: None

PATIENT
  Sex: Female
  Weight: 87 kg

DRUGS (26)
  1. FULVESTRANT [Suspect]
     Active Substance: FULVESTRANT
     Indication: Product used for unknown indication
     Dates: end: 20230801
  2. RIBOCICLIB [Suspect]
     Active Substance: RIBOCICLIB
     Indication: Breast cancer metastatic
     Dosage: 0 MG, QD
     Dates: start: 20220503, end: 20220509
  3. RIBOCICLIB [Suspect]
     Active Substance: RIBOCICLIB
     Indication: Breast cancer metastatic
     Dosage: 0 MG, QD
     Dates: start: 20230620, end: 20230626
  4. RIBOCICLIB [Suspect]
     Active Substance: RIBOCICLIB
     Indication: Breast cancer metastatic
     Dosage: 0 MG, QD
     Dates: start: 20210309, end: 20210315
  5. RIBOCICLIB [Suspect]
     Active Substance: RIBOCICLIB
     Indication: Breast cancer metastatic
     Dosage: 600 MG, QD, ) SCHEME 21 DAYS INTAKE, 7 DAYS BREAK
     Dates: start: 20210316, end: 20210412
  6. RIBOCICLIB [Suspect]
     Active Substance: RIBOCICLIB
     Indication: Breast cancer metastatic
     Dosage: 0 MG, QD
     Dates: start: 20210720, end: 20210720
  7. RIBOCICLIB [Suspect]
     Active Substance: RIBOCICLIB
     Indication: Breast cancer metastatic
     Dosage: 0 MG
     Dates: start: 20210615, end: 20210621
  8. RIBOCICLIB [Suspect]
     Active Substance: RIBOCICLIB
     Indication: Breast cancer metastatic
     Dosage: 400 MG, QD, ) SCHEME 21 DAYS INTAKE, 7 DAYS BREAK
     Dates: start: 20220712, end: 20220905
  9. RIBOCICLIB [Suspect]
     Active Substance: RIBOCICLIB
     Indication: Breast cancer metastatic
     Dosage: 400 MG, QD, ) SCHEME 21 DAYS INTAKE, 7 DAYS BREAK
     Dates: start: 20210420, end: 20210614
  10. RIBOCICLIB [Suspect]
     Active Substance: RIBOCICLIB
     Indication: Breast cancer metastatic
     Dosage: 400 MG, QD, SCHEME 21 DAYS INTAKE, 7 DAYS BREAK
     Dates: start: 20210721, end: 20211109
  11. RIBOCICLIB [Suspect]
     Active Substance: RIBOCICLIB
     Indication: Breast cancer metastatic
     Dosage: 400 MG, QD, SCHEME 21 DAYS INTAKE, 7 DAYS BREAK
     Dates: start: 20200908, end: 20201005
  12. RIBOCICLIB [Suspect]
     Active Substance: RIBOCICLIB
     Indication: Breast cancer metastatic
     Dosage: 0 MG, QD
     Dates: start: 20220705, end: 20220711
  13. RIBOCICLIB [Suspect]
     Active Substance: RIBOCICLIB
     Indication: Breast cancer metastatic
     Dosage: 0 MG, QD
     Dates: start: 20210413, end: 20210419
  14. RIBOCICLIB [Suspect]
     Active Substance: RIBOCICLIB
     Indication: Breast cancer metastatic
     Dosage: 400 MG, QD, SCHEME 21 DAYS INTAKE, 7 DAYS BREAK
     Dates: start: 20220913, end: 20230619
  15. RIBOCICLIB [Suspect]
     Active Substance: RIBOCICLIB
     Indication: Breast cancer metastatic
     Dosage: 400 MG, QD, ) SCHEME 21 DAYS INTAKE, 7 DAYS BREAK
     Dates: start: 20211116, end: 20220502
  16. RIBOCICLIB [Suspect]
     Active Substance: RIBOCICLIB
     Indication: Breast cancer metastatic
     Dosage: 400 MG, QD, SCHEME 21 DAYS INTAKE, 7 DAYS BREAK
     Dates: start: 20210112, end: 20210308
  17. RIBOCICLIB [Suspect]
     Active Substance: RIBOCICLIB
     Indication: Breast cancer metastatic
     Dosage: 0 MG
     Dates: start: 20211110, end: 20211115
  18. RIBOCICLIB [Suspect]
     Active Substance: RIBOCICLIB
     Indication: Breast cancer metastatic
     Dosage: 0 MG, QD
     Dates: start: 20220906, end: 20220912
  19. RIBOCICLIB [Suspect]
     Active Substance: RIBOCICLIB
     Indication: Breast cancer metastatic
     Dosage: 400 MG(DAILY DOSE) SCHEME 21 DAYS INTAKE, 7 DAYS BREAK
     Route: 048
     Dates: start: 20230627
  20. RIBOCICLIB [Suspect]
     Active Substance: RIBOCICLIB
     Indication: Breast cancer metastatic
     Dosage: 400 MG, QD, SCHEME 21 DAYS INTAKE, 7 DAYS BREAK
     Dates: start: 20210721, end: 20211109
  21. RIBOCICLIB [Suspect]
     Active Substance: RIBOCICLIB
     Indication: Breast cancer metastatic
     Dosage: 400 MG(DAILY DOSE) SCHEME 21 DAYS INTAKE, 7 DAYS BREAK
     Route: 048
     Dates: start: 20220510, end: 20220704
  22. RIBOCICLIB [Suspect]
     Active Substance: RIBOCICLIB
     Indication: Breast cancer metastatic
     Dosage: 400 MG(DAILY DOSE) SCHEME 21 DAYS INTAKE, 7 DAYS BREAK
     Route: 048
     Dates: start: 20210622, end: 20210719
  23. RIBOCICLIB [Suspect]
     Active Substance: RIBOCICLIB
     Indication: Breast cancer metastatic
     Dosage: 400 MG, QD, ) SCHEME 21 DAYS INTAKE, 7 DAYS BREAK
     Route: 048
     Dates: start: 20220712, end: 20220905
  24. RIBOCICLIB [Suspect]
     Active Substance: RIBOCICLIB
     Indication: Breast cancer metastatic
     Dosage: 600 MG, QD, ) SCHEME 21 DAYS INTAKE, 7 DAYS BREAK
     Route: 048
     Dates: start: 20210316, end: 20210412
  25. RIBOCICLIB [Suspect]
     Active Substance: RIBOCICLIB
     Indication: Breast cancer metastatic
     Dosage: 400 MG, QD, ) SCHEME 21 DAYS INTAKE, 7 DAYS BREAK
     Route: 048
     Dates: start: 20210420, end: 20210614
  26. RIBOCICLIB [Suspect]
     Active Substance: RIBOCICLIB
     Indication: Breast cancer metastatic
     Dosage: 600 MG, QD, SCHEME 21 DAYS INTAKE, 7 DAYS BREAK
     Dates: start: 20201013, end: 20210104

REACTIONS (2)
  - Disease progression [Not Recovered/Not Resolved]
  - Breast cancer metastatic [Not Recovered/Not Resolved]

NARRATIVE: CASE EVENT DATE: 20230802
